FAERS Safety Report 7807811 (Version 3)
Quarter: 2016Q2

REPORT INFORMATION
  Report Type: Report from Study
  Country: TH (occurrence: TH)
  Receive Date: 20110210
  Receipt Date: 20160511
  Transmission Date: 20160815
  Serious: Yes (Hospitalization)
  Sender: FDA-Public Use
  Company Number: PHHO2011TH01231

PATIENT
  Age: 63 Year
  Sex: Female
  Weight: 37.5 kg

DRUGS (3)
  1. ALISKIREN [Suspect]
     Active Substance: ALISKIREN
     Dosage: 300 MG, UNK
     Route: 048
     Dates: start: 20100106
  2. ALISKIREN [Suspect]
     Active Substance: ALISKIREN
     Indication: CARDIAC FAILURE
     Dosage: RUN IN PHASE
     Route: 048
     Dates: start: 20091215, end: 20100105
  3. COMPARATOR ENALAPRIL [Suspect]
     Active Substance: ENALAPRIL
     Indication: CARDIAC FAILURE
     Dosage: RUN IN PHASE
     Route: 048
     Dates: start: 20091117, end: 20100105

REACTIONS (4)
  - Tracheobronchitis [Recovered/Resolved]
  - Pyrexia [Recovered/Resolved]
  - Hypophagia [Recovered/Resolved]
  - Acute prerenal failure [Recovered/Resolved]

NARRATIVE: CASE EVENT DATE: 20101223
